FAERS Safety Report 6406365-3 (Version None)
Quarter: 2009Q4

REPORT INFORMATION
  Report Type: 
  Country: None (occurrence: None)
  Receive Date: 20091019
  Receipt Date: 20090921
  Transmission Date: 20100525
  Serious: No
  Sender: FDA-Public Use
  Company Number: US-BAYER-200914833BCC

PATIENT
  Age: 71 Year
  Sex: Male
  Weight: 95 kg

DRUGS (1)
  1. ALEVE [Suspect]
     Indication: PAIN
     Route: 048
     Dates: start: 20040101, end: 20040101

REACTIONS (1)
  - RASH [None]
